FAERS Safety Report 18508202 (Version 2)
Quarter: 2020Q4

REPORT INFORMATION
  Report Type: Spontaneous
  Country: AU (occurrence: AU)
  Receive Date: 20201116
  Receipt Date: 20201124
  Transmission Date: 20210114
  Serious: Yes (Other)
  Sender: FDA-Public Use
  Company Number: AU-GE HEALTHCARE LIFE SCIENCES-2020CSU005705

PATIENT

DRUGS (6)
  1. OMNIPAQUE [Suspect]
     Active Substance: IOHEXOL
     Indication: ATELECTASIS
  2. OMNIPAQUE [Suspect]
     Active Substance: IOHEXOL
     Indication: BRONCHOSCOPY NORMAL
  3. OMNIPAQUE [Suspect]
     Active Substance: IOHEXOL
     Indication: COMPUTERISED TOMOGRAM THORAX
     Dosage: 75 ML, SINGLE
     Route: 042
     Dates: start: 20201104, end: 20201104
  4. OMNIPAQUE [Suspect]
     Active Substance: IOHEXOL
     Indication: EX-TOBACCO USER
  5. PREDNISOLONE. [Concomitant]
     Active Substance: PREDNISOLONE
     Indication: CONTRAST MEDIA REACTION
  6. PREDNISOLONE. [Concomitant]
     Active Substance: PREDNISOLONE
     Indication: PREMEDICATION
     Dosage: UNK
     Route: 048
     Dates: start: 20201104, end: 20201104

REACTIONS (3)
  - Sneezing [Recovered/Resolved]
  - Hypoaesthesia oral [Recovered/Resolved]
  - Paraesthesia oral [Recovered/Resolved]

NARRATIVE: CASE EVENT DATE: 20201104
